FAERS Safety Report 21880826 (Version 2)
Quarter: 2023Q1

REPORT INFORMATION
  Report Type: Spontaneous
  Country: FR (occurrence: FR)
  Receive Date: 20230118
  Receipt Date: 20230127
  Transmission Date: 20230417
  Serious: No
  Sender: FDA-Public Use
  Company Number: FR-ALXN-A202300060

PATIENT
  Age: 65 Year
  Sex: Male
  Weight: 70 kg

DRUGS (3)
  1. SOLIRIS [Suspect]
     Active Substance: ECULIZUMAB
     Indication: Thrombotic microangiopathy
     Dosage: 900 MG, QW
     Route: 065
     Dates: start: 20221227
  2. SOLIRIS [Suspect]
     Active Substance: ECULIZUMAB
     Indication: Off label use
  3. ORACILLINE                         /00001801/ [Concomitant]
     Indication: Neoplasm prophylaxis
     Dosage: 1000000 IU, TWICE A WEEK
     Route: 065

REACTIONS (1)
  - Off label use [Unknown]
